FAERS Safety Report 10384041 (Version 2)
Quarter: 2014Q4

REPORT INFORMATION
  Report Type: Spontaneous
  Country: TW (occurrence: TW)
  Receive Date: 20140814
  Receipt Date: 20141113
  Transmission Date: 20150528
  Serious: Yes (Hospitalization)
  Sender: FDA-Public Use
  Company Number: PHHY2014TW099430

PATIENT
  Age: 6 Year
  Sex: Male
  Weight: 21.6 kg

DRUGS (3)
  1. EVEROLIMUS [Concomitant]
     Active Substance: EVEROLIMUS
     Indication: PRODUCT USED FOR UNKNOWN INDICATION
     Dosage: 5 MG, QD
     Route: 065
     Dates: start: 20120315
  2. VOTUBIA [Suspect]
     Active Substance: EVEROLIMUS
     Indication: PRODUCT USED FOR UNKNOWN INDICATION
     Dosage: 2 DF, QD (2.5 MG)
     Route: 048
     Dates: start: 20120315
  3. EVEROLIMUS [Concomitant]
     Active Substance: EVEROLIMUS
     Dosage: 25 MG, BID
     Route: 065
     Dates: start: 20131018

REACTIONS (5)
  - Tenderness [Unknown]
  - Arthritis [Recovered/Resolved]
  - Gait disturbance [Recovered/Resolved]
  - Joint effusion [Unknown]
  - Arthralgia [Recovered/Resolved]

NARRATIVE: CASE EVENT DATE: 20140206
